FAERS Safety Report 6714170-3 (Version None)
Quarter: 2010Q2

REPORT INFORMATION
  Report Type: 
  Country: None (occurrence: None)
  Receive Date: 20100506
  Receipt Date: 20100427
  Transmission Date: 20101027
  Serious: Yes (Hospitalization, Other)
  Sender: FDA-Public Use
  Company Number: GB-ROCHE-671230

PATIENT
  Sex: Female
  Weight: 65 kg

DRUGS (7)
  1. TRASTUZUMAB [Suspect]
     Indication: BREAST CANCER
     Dosage: DDOSAGE FORM: VIAL, DOSE LEVEL: 6 MG/KG, DATE OF LAST DOSE PRIOR TO SAE: 23 DEC 2009.
     Route: 042
     Dates: start: 20091112
  2. BEVACIZUMAB [Suspect]
     Indication: BREAST CANCER
     Dosage: DOSAGE FORM: VIALS, DOSE LEVEL: 15 MG/KG, DATE OF LAST DOSE PRIOR TO SAE : 23 DEC 2009
     Route: 042
     Dates: start: 20091112
  3. DOCETAXEL [Suspect]
     Indication: BREAST CANCER
     Dosage: DOSAGE FORM: VIAL, DOSE LEVEL: 75 MG/M2, DATE OF LAST DOSE PRIOR TO SAE: 23 DEC 2009
     Route: 042
     Dates: start: 20091112
  4. CARBOPLATIN [Suspect]
     Indication: BREAST CANCER
     Dosage: DOSAGE FORM: VIAL, DOSE LEVEL: 6 AUC, DATE OF LAST DOSE PRIOR TO SAE: 23 DEC 2009.
     Route: 042
     Dates: start: 20091112
  5. CLARITHROMYCIN [Suspect]
     Indication: DRUG USE FOR UNKNOWN INDICATION
     Route: 065
     Dates: start: 20091205, end: 20091210
  6. PROCHLORPERAZINE [Concomitant]
     Dates: start: 20091207
  7. MORPHINE [Concomitant]
     Dosage: DRUG REPORTED AS OROMORPH
     Dates: start: 20091125

REACTIONS (4)
  - DIARRHOEA [None]
  - INFECTION [None]
  - NEUTROPENIC SEPSIS [None]
  - PYREXIA [None]
